FAERS Safety Report 19172939 (Version 1)
Quarter: 2021Q2

REPORT INFORMATION
  Report Type: Spontaneous
  Country: US (occurrence: US)
  Receive Date: 20210423
  Receipt Date: 20210423
  Transmission Date: 20210717
  Serious: No
  Sender: FDA-Public Use
  Company Number: US-SCIEGENPHARMA-2021SCISPO00389

PATIENT
  Sex: Male

DRUGS (2)
  1. GABAPENTIN CAPSULES [Suspect]
     Active Substance: GABAPENTIN
     Indication: DEPRESSION
     Route: 065
  2. GABAPENTIN CAPSULES [Suspect]
     Active Substance: GABAPENTIN
     Indication: ANXIETY

REACTIONS (2)
  - Product substitution issue [Unknown]
  - Drug ineffective for unapproved indication [Unknown]
